FAERS Safety Report 10946979 (Version 1)
Quarter: 2015Q1

REPORT INFORMATION
  Report Type: Spontaneous
  Country: US (occurrence: None)
  Receive Date: 20150212
  Receipt Date: 20150212
  Transmission Date: 20150721
  Serious: No
  Sender: FDA-Public Use
  Company Number: TPA2011A00644

PATIENT
  Age: 39 Year
  Sex: Male
  Weight: 81.65 kg

DRUGS (3)
  1. COLCHICINE. [Concomitant]
     Active Substance: COLCHICINE
  2. ULORIC [Suspect]
     Active Substance: FEBUXOSTAT
     Indication: GOUT
     Dosage: 1 IN 1 D
     Route: 048
     Dates: start: 20110207
  3. LIPITOR [Concomitant]
     Active Substance: ATORVASTATIN CALCIUM

REACTIONS (2)
  - Sinus headache [None]
  - Dizziness [None]

NARRATIVE: CASE EVENT DATE: 201102
